FAERS Safety Report 6966147-0 (Version None)
Quarter: 2010Q3

REPORT INFORMATION
  Report Type: 
  Country: None (occurrence: None)
  Receive Date: 20100903
  Receipt Date: 20100901
  Transmission Date: 20110219
  Serious: Yes (Death)
  Sender: FDA-Public Use
  Company Number: PHHY2010MX30434

PATIENT
  Age: 66 Year
  Sex: Male

DRUGS (1)
  1. ZOMETA [Suspect]
     Indication: NEOPLASM MALIGNANT
     Dosage: 4 MG/5 ML PER MONTH
     Dates: start: 20100501

REACTIONS (2)
  - MALIGNANT NEOPLASM PROGRESSION [None]
  - RESPIRATORY ARREST [None]
